FAERS Safety Report 8585509-1 (Version None)
Quarter: 2012Q3

REPORT INFORMATION
  Report Type: 
  Country: None (occurrence: None)
  Receive Date: 20120810
  Receipt Date: 20120524
  Transmission Date: 20120928
  Serious: Yes (Other)
  Sender: FDA-Public Use
  Company Number: US-009507513-2012SP035518

PATIENT

DRUGS (1)
  1. COPPERTONE WATER BABIES QUICK COVER LOTION SPRAY SPF-50 [Suspect]
     Indication: PRODUCT USED FOR UNKNOWN INDICATION
     Dosage: UNK UNK, UNKNOWN
     Route: 061

REACTIONS (2)
  - HYPERSENSITIVITY [None]
  - SWELLING FACE [None]
